FAERS Safety Report 25550320 (Version 2)
Quarter: 2025Q3

REPORT INFORMATION
  Report Type: Spontaneous
  Country: VN (occurrence: VN)
  Receive Date: 20250714
  Receipt Date: 20250730
  Transmission Date: 20251020
  Serious: Yes (Other)
  Sender: TEVA
  Company Number: VN-TEVA-VS-3351108

PATIENT
  Age: 7 Year
  Sex: Male

DRUGS (31)
  1. VINCRISTINE [Suspect]
     Active Substance: VINCRISTINE
     Indication: Burkitt^s lymphoma stage III
     Route: 042
  2. VINCRISTINE [Suspect]
     Active Substance: VINCRISTINE
     Indication: Burkitt^s lymphoma stage III
     Route: 042
     Dates: start: 20230422
  3. VINCRISTINE [Suspect]
     Active Substance: VINCRISTINE
     Indication: Burkitt^s lymphoma stage III
     Route: 042
     Dates: start: 20230313
  4. VINCRISTINE [Suspect]
     Active Substance: VINCRISTINE
     Indication: Burkitt^s lymphoma stage III
     Route: 042
     Dates: start: 20230811
  5. CYCLOPHOSPHAMIDE [Suspect]
     Active Substance: CYCLOPHOSPHAMIDE
     Indication: Burkitt^s lymphoma stage III
     Route: 042
  6. CYCLOPHOSPHAMIDE [Suspect]
     Active Substance: CYCLOPHOSPHAMIDE
     Indication: Burkitt^s lymphoma stage III
     Route: 042
     Dates: start: 20230811
  7. CYCLOPHOSPHAMIDE [Suspect]
     Active Substance: CYCLOPHOSPHAMIDE
     Indication: Burkitt^s lymphoma stage III
     Route: 042
     Dates: start: 20230313
  8. CYCLOPHOSPHAMIDE [Suspect]
     Active Substance: CYCLOPHOSPHAMIDE
     Indication: Burkitt^s lymphoma stage III
     Route: 042
     Dates: start: 20230422
  9. HYDROCORTISONE ACETATE [Suspect]
     Active Substance: HYDROCORTISONE ACETATE
     Indication: Hormone replacement therapy
     Route: 048
     Dates: start: 2023
  10. DOXORUBICIN [Suspect]
     Active Substance: DOXORUBICIN
     Indication: Burkitt^s lymphoma stage III
     Route: 042
     Dates: start: 20230811
  11. DOXORUBICIN [Suspect]
     Active Substance: DOXORUBICIN
     Indication: Burkitt^s lymphoma stage III
     Route: 042
  12. DOXORUBICIN [Suspect]
     Active Substance: DOXORUBICIN
     Indication: Burkitt^s lymphoma stage III
     Route: 042
     Dates: start: 20230422
  13. PREDNISOLONE [Suspect]
     Active Substance: PREDNISOLONE
     Indication: Burkitt^s lymphoma stage III
     Dosage: COPADM1 REGIMEN; RECEIVED FROM DAY 1 TO DAY 5
     Route: 048
  14. PREDNISOLONE [Suspect]
     Active Substance: PREDNISOLONE
     Indication: Burkitt^s lymphoma stage III
     Dosage: COP REGIMEN; RECEIVED FROM DAY 1 TO DAY 7
     Route: 048
     Dates: start: 20230313
  15. PREDNISOLONE [Suspect]
     Active Substance: PREDNISOLONE
     Indication: Burkitt^s lymphoma stage III
     Dosage: COPADM3 REGIMEN; RECEIVED FROM DAY 1 TO DAY 5
     Route: 048
     Dates: start: 20230811
  16. PREDNISOLONE [Suspect]
     Active Substance: PREDNISOLONE
     Indication: Burkitt^s lymphoma stage III
     Dosage: COPADM2 REGIMEN; RECEIVED FROM DAY 1 TO DAY 5
     Route: 048
     Dates: start: 20230422
  17. VANCOMYCIN [Suspect]
     Active Substance: VANCOMYCIN
     Indication: Febrile neutropenia
     Route: 065
  18. METHOTREXATE [Suspect]
     Active Substance: METHOTREXATE
     Indication: Burkitt^s lymphoma stage III
     Route: 042
     Dates: start: 20230711
  19. METHOTREXATE [Suspect]
     Active Substance: METHOTREXATE
     Indication: Burkitt^s lymphoma stage III
     Route: 042
     Dates: start: 20230422
  20. METHOTREXATE [Suspect]
     Active Substance: METHOTREXATE
     Indication: Burkitt^s lymphoma stage III
     Route: 042
     Dates: start: 20230523
  21. METHOTREXATE [Suspect]
     Active Substance: METHOTREXATE
     Indication: Burkitt^s lymphoma stage III
     Route: 042
     Dates: start: 20230811
  22. METHOTREXATE [Suspect]
     Active Substance: METHOTREXATE
     Indication: Burkitt^s lymphoma stage III
     Route: 042
  23. METHOTREXATE [Suspect]
     Active Substance: METHOTREXATE
     Indication: Burkitt^s lymphoma stage III
     Route: 037
     Dates: start: 20230313
  24. METHOTREXATE [Suspect]
     Active Substance: METHOTREXATE
     Indication: Burkitt^s lymphoma stage III
     Route: 037
     Dates: start: 20230422
  25. METHOTREXATE [Suspect]
     Active Substance: METHOTREXATE
     Indication: Burkitt^s lymphoma stage III
     Route: 037
     Dates: start: 20230711
  26. METHOTREXATE [Suspect]
     Active Substance: METHOTREXATE
     Indication: Burkitt^s lymphoma stage III
     Route: 037
  27. METHOTREXATE [Suspect]
     Active Substance: METHOTREXATE
     Indication: Burkitt^s lymphoma stage III
     Route: 037
     Dates: start: 20230811
  28. METHOTREXATE [Suspect]
     Active Substance: METHOTREXATE
     Indication: Burkitt^s lymphoma stage III
     Route: 037
     Dates: start: 20230523
  29. CYTARABINE [Suspect]
     Active Substance: CYTARABINE
     Indication: Burkitt^s lymphoma stage III
     Route: 037
     Dates: start: 20230523
  30. CYTARABINE [Suspect]
     Active Substance: CYTARABINE
     Indication: Burkitt^s lymphoma stage III
     Route: 037
     Dates: start: 20230711
  31. AMPHOTERICIN B [Suspect]
     Active Substance: AMPHOTERICIN B
     Indication: Febrile neutropenia
     Route: 065

REACTIONS (2)
  - Febrile neutropenia [Recovered/Resolved]
  - Acute kidney injury [Recovered/Resolved]
